FAERS Safety Report 8993360 (Version 1)
Quarter: 2013Q1

REPORT INFORMATION
  Report Type: Report from Study
  Country: US (occurrence: US)
  Receive Date: 20130102
  Receipt Date: 20130102
  Transmission Date: 20140127
  Serious: Yes (Other)
  Sender: FDA-Public Use
  Company Number: US-PFIZER INC-2012331254

PATIENT
  Sex: 0
  Weight: 1.42 kg

DRUGS (3)
  1. ADRIAMYCIN [Suspect]
     Indication: BREAST CANCER
     Dosage: UNK
     Route: 064
  2. PACLITAXEL [Suspect]
     Indication: BREAST CANCER
     Dosage: UNK
     Route: 064
  3. CYTOXAN [Suspect]
     Indication: BREAST CANCER
     Dosage: UNK
     Route: 064

REACTIONS (4)
  - Maternal exposure timing unspecified [Unknown]
  - Apnoea [Unknown]
  - Neonatal respiratory distress syndrome [Unknown]
  - Gastrooesophageal reflux disease [Unknown]
